FAERS Safety Report 25172445 (Version 1)
Quarter: 2025Q2

REPORT INFORMATION
  Report Type: Spontaneous
  Country: IT (occurrence: IT)
  Receive Date: 20250408
  Receipt Date: 20250408
  Transmission Date: 20250717
  Serious: Yes (Other)
  Sender: HIKMA
  Company Number: None

PATIENT
  Age: 53 Year
  Sex: Female

DRUGS (3)
  1. ABRAXANE [Suspect]
     Active Substance: PACLITAXEL
     Indication: Breast cancer
     Dosage: 174 MILLIGRAM, WEEKLY
     Route: 042
     Dates: start: 20250226, end: 20250226
  2. CARBOPLATIN [Suspect]
     Active Substance: CARBOPLATIN
     Indication: Breast cancer
     Dosage: 179.24 MILLIGRAM, WEEKLY
     Route: 042
     Dates: start: 20250226, end: 20250226
  3. KEYTRUDA [Concomitant]
     Active Substance: PEMBROLIZUMAB
     Indication: Product used for unknown indication
     Dosage: 200 MILLIGRAM, 3W
     Route: 065
     Dates: start: 20250219, end: 20250219

REACTIONS (3)
  - Dysgeusia [Recovered/Resolved]
  - Thrombocytopenia [Recovered/Resolved]
  - Off label use [Not Recovered/Not Resolved]

NARRATIVE: CASE EVENT DATE: 20250226
